FAERS Safety Report 9537072 (Version 1)
Quarter: 2013Q3

REPORT INFORMATION
  Report Type: Spontaneous
  Country: US (occurrence: None)
  Receive Date: 20130918
  Receipt Date: 20130918
  Transmission Date: 20140515
  Serious: No
  Sender: FDA-Public Use
  Company Number: None

PATIENT
  Age: 24 Year
  Sex: Male
  Weight: 88.45 kg

DRUGS (4)
  1. LARIAM [Suspect]
     Indication: MALARIA PROPHYLAXIS
     Dosage: 250 MG  1 TABLET WEEKLY ORAL
     Route: 048
     Dates: start: 19930720, end: 19940301
  2. IBUPROFEN [Concomitant]
  3. SIMVASTATIN [Concomitant]
  4. CLARITIN [Concomitant]

REACTIONS (20)
  - Nightmare [None]
  - Dry mouth [None]
  - Personality disorder [None]
  - Depression [None]
  - Agitation [None]
  - Irritability [None]
  - Somnambulism [None]
  - Anger [None]
  - Affective disorder [None]
  - Fear of crowded places [None]
  - Insomnia [None]
  - Memory impairment [None]
  - Disturbance in attention [None]
  - Impulsive behaviour [None]
  - Obsessive-compulsive disorder [None]
  - Dizziness [None]
  - Vertigo [None]
  - Headache [None]
  - Sleep apnoea syndrome [None]
  - Gait disturbance [None]
